FAERS Safety Report 24361562 (Version 1)
Quarter: 2024Q3

REPORT INFORMATION
  Report Type: Spontaneous
  Country: US (occurrence: US)
  Receive Date: 20240925
  Receipt Date: 20240925
  Transmission Date: 20241017
  Serious: No
  Sender: ROCHE
  Company Number: US-ROCHE-10000083383

PATIENT
  Sex: Female

DRUGS (32)
  1. HERCEPTIN [Suspect]
     Active Substance: TRASTUZUMAB
     Indication: Lung neoplasm malignant
     Route: 065
  2. PEMETREXED [Suspect]
     Active Substance: PEMETREXED
     Indication: Lung neoplasm malignant
     Route: 065
  3. CARBOPLATIN [Suspect]
     Active Substance: CARBOPLATIN
     Indication: Lung neoplasm malignant
     Route: 065
  4. OXALIPLATIN [Suspect]
     Active Substance: OXALIPLATIN
     Indication: Lung neoplasm malignant
     Route: 065
  5. FLUOROURACIL\LEUCOVORIN CALCIUM\OXALIPLATIN [Suspect]
     Active Substance: FLUOROURACIL\LEUCOVORIN CALCIUM\OXALIPLATIN
     Indication: Lung neoplasm malignant
     Route: 065
  6. TUCATINIB [Suspect]
     Active Substance: TUCATINIB
     Indication: Lung neoplasm malignant
     Route: 048
  7. PEMBROLIZUMAB [Suspect]
     Active Substance: PEMBROLIZUMAB
     Indication: Lung neoplasm malignant
     Route: 065
  8. ALBUTEROL [Concomitant]
     Active Substance: ALBUTEROL
     Dosage: 90MCG ACTUATION INHALER, INHALE 2 PUFF INTO THE LUNGS EVERY 6 HOURS AS NEEDED.
  9. ALBUMIN HUMAN [Concomitant]
     Active Substance: ALBUMIN HUMAN
  10. AMLODIPINE [Concomitant]
     Active Substance: AMLODIPINE BESYLATE
  11. CAPSAICIN [Concomitant]
     Active Substance: CAPSAICIN
     Dosage: APPLY UPTO 3 ^4 TIMES A DAY ON AFFECTED AREA MAKE SURE NOT TO TOUCH YOUR EYES AFTER APPLICATION
  12. DEXAMETHASONE [Concomitant]
     Active Substance: DEXAMETHASONE
     Dosage: TAKE 1 TABLET BY MOUTH TWO TIMES DAILY WITH MEALS.
     Route: 048
  13. GABAPENTIN [Concomitant]
     Active Substance: GABAPENTIN
     Dosage: TAKE 1 CAPSULE BY MOUTH THREE TIMES DAILY
     Route: 048
  14. GABAPENTIN [Concomitant]
     Active Substance: GABAPENTIN
     Dosage: TAKE 2 TABLETS IN THE MORNING 1 IN THE AFTERNOON AND 2 TABLETRS AT THE NIIGHT
     Route: 048
  15. HYDROCHLOROTHIAZIDE [Concomitant]
     Active Substance: HYDROCHLOROTHIAZIDE
     Route: 048
  16. LIDOCAINE [Concomitant]
     Active Substance: LIDOCAINE
     Dosage: APPLZ 1 APPLICATION TOPICALLY IF NEEDED
     Route: 061
  17. LORAZEPAM [Concomitant]
     Active Substance: LORAZEPAM
     Indication: Anxiety
  18. LORAZEPAM [Concomitant]
     Active Substance: LORAZEPAM
     Indication: Nausea
  19. LORAZEPAM [Concomitant]
     Active Substance: LORAZEPAM
     Indication: Vomiting
  20. PREDNISONE [Concomitant]
     Active Substance: PREDNISONE
     Route: 048
  21. SIMETHICONE (DIMETHICONE) [Concomitant]
     Active Substance: DIMETHICONE
     Dosage: TAKE 30ML BYMOUTH EVERY 6 HOURS AS NEEDED?DISPENSE 150 ML
  22. ERGOCALCIFEROL [Concomitant]
     Active Substance: ERGOCALCIFEROL
     Dosage: TAKE 1 CAPSULE BY MOUTH ONCE A WEEK?1250MCG
     Route: 048
  23. FOLIC ACID [Concomitant]
     Active Substance: FOLIC ACID
     Dosage: TAKE 1 TABLET BY MOUTH DAILY
     Route: 048
  24. LISINOPRIL [Concomitant]
     Active Substance: LISINOPRIL
     Dosage: TAKE 1 TABLET BY MOUTH 2 TIMES DAILY
  25. ONDANSETRON [Concomitant]
     Active Substance: ONDANSETRON
     Route: 048
  26. OLOPATADINE [Concomitant]
     Active Substance: OLOPATADINE
  27. MIRALAX [Concomitant]
     Active Substance: POLYETHYLENE GLYCOL 3350
     Route: 048
  28. POTASSIUM CHLORIDE [Concomitant]
     Active Substance: POTASSIUM CHLORIDE
     Route: 048
  29. PROCHLORPERAZINE [Concomitant]
     Active Substance: PROCHLORPERAZINE
     Route: 048
  30. SODIUM CHLORIDE [Concomitant]
     Active Substance: SODIUM CHLORIDE
     Route: 050
  31. SODIUM CHLORIDE [Concomitant]
     Active Substance: SODIUM CHLORIDE
     Route: 050
  32. MVASI [Concomitant]
     Active Substance: BEVACIZUMAB-AWWB

REACTIONS (2)
  - Rash [Unknown]
  - Oedema peripheral [Unknown]
